FAERS Safety Report 8409590-5 (Version None)
Quarter: 2012Q2

REPORT INFORMATION
  Report Type: 
  Country: None (occurrence: None)
  Receive Date: 20120531
  Receipt Date: 20120531
  Transmission Date: 20120825
  Serious: No
  Sender: FDA-Public Use
  Company Number: None

PATIENT
  Sex: Male
  Weight: 90.2658 kg

DRUGS (3)
  1. ZIPRASIDONE HCL [Suspect]
     Indication: IRRITABILITY
     Dosage: 40 MG QD PO
     Route: 048
     Dates: start: 20120330, end: 20120411
  2. ZIPRASIDONE HCL [Suspect]
     Indication: AGGRESSION
     Dosage: 40 MG QD PO
     Route: 048
     Dates: start: 20120330, end: 20120411
  3. ZIPRASIDONE HCL [Suspect]
     Indication: EMOTIONAL DISORDER
     Dosage: 40 MG QD PO
     Route: 048
     Dates: start: 20120330, end: 20120411

REACTIONS (4)
  - AGGRESSION [None]
  - IRRITABILITY [None]
  - CONDITION AGGRAVATED [None]
  - EMOTIONAL DISORDER [None]
